FAERS Safety Report 5002030-8 (Version None)
Quarter: 2006Q2

REPORT INFORMATION
  Report Type: 
  Country: None (occurrence: None)
  Receive Date: 20060511
  Receipt Date: 20060511
  Transmission Date: 20061013
  Serious: Yes (Death)
  Sender: FDA-Public Use
  Company Number: None

PATIENT
  Age: 70 Year
  Sex: Male
  Weight: 90 kg

DRUGS (18)
  1. OMNIPAQUE 350 [Suspect]
     Dosage: 100 ML
     Dates: start: 20060502
  2. GLUCOVANCE [Suspect]
     Indication: DIABETES MELLITUS
     Dosage: 2 QAM , 1 Q PM [HOME MEDICATION]
  3. MANNOL [Concomitant]
  4. LOZOL [Concomitant]
  5. MOBIC [Concomitant]
  6. LORTAB [Concomitant]
  7. TESSALON [Concomitant]
  8. AVAPRO [Concomitant]
  9. CHLORPROMAZINE [Concomitant]
  10. TUSSIONEX [Concomitant]
  11. MEGACE [Concomitant]
  12. PROMETHAZINE [Concomitant]
  13. MAXIPIME [Concomitant]
  14. TESSALIN [Concomitant]
  15. PROMETHAZINE [Concomitant]
  16. REGLAN [Concomitant]
  17. DILAUDID [Concomitant]
  18. VARIOUS INSULINS [Concomitant]

REACTIONS (7)
  - DYSPNOEA [None]
  - LACTIC ACIDOSIS [None]
  - LUNG NEOPLASM MALIGNANT [None]
  - PNEUMONIA [None]
  - PULMONARY EMBOLISM [None]
  - RENAL FAILURE ACUTE [None]
  - URINE OUTPUT DECREASED [None]
